FAERS Safety Report 4610631-1 (Version None)
Quarter: 2005Q1

REPORT INFORMATION
  Report Type: 
  Country: None (occurrence: None)
  Receive Date: 20050316
  Receipt Date: 20050311
  Transmission Date: 20050727
  Serious: Yes (Death)
  Sender: FDA-Public Use
  Company Number: 05-03-0404

PATIENT
  Age: 56 Year
  Sex: Male

DRUGS (4)
  1. DIAZEPAM [Suspect]
  2. MIRTAZAPINE [Suspect]
  3. SILDENAFIL [Suspect]
  4. ALCOHOL [Suspect]

REACTIONS (2)
  - BLOOD ALCOHOL INCREASED [None]
  - SUDDEN DEATH [None]
